FAERS Safety Report 24053920 (Version 1)
Quarter: 2024Q3

REPORT INFORMATION
  Report Type: Spontaneous
  Country: GB (occurrence: GB)
  Receive Date: 20240705
  Receipt Date: 20240705
  Transmission Date: 20241017
  Serious: No
  Sender: ALKEM
  Company Number: None

PATIENT
  Age: 79 Year
  Sex: Female
  Weight: 60 kg

DRUGS (7)
  1. SOLIFENACIN [Suspect]
     Active Substance: SOLIFENACIN
     Indication: Bladder disorder
     Dosage: 5 MILLIGRAM, QD (TAKE ONE (TABLET) EACH DAY FOR BLADDER PROBLEMS)
     Route: 065
     Dates: start: 20230816
  2. AMLODIPINE [Concomitant]
     Active Substance: AMLODIPINE BESYLATE
     Indication: Product used for unknown indication
     Dosage: UNK, QD (ONE TO BE TAKEN DAILY)
     Route: 065
     Dates: start: 20221129
  3. ESTRIOL [Concomitant]
     Active Substance: ESTRIOL
     Indication: Product used for unknown indication
     Dosage: UNK, (INSERT ONE APPLICATORFUL INTO THE VAGINA AT NIG...)
     Route: 067
     Dates: start: 20221129, end: 20230704
  4. LISINOPRIL [Concomitant]
     Active Substance: LISINOPRIL
     Indication: Product used for unknown indication
     Dosage: 1 DOSAGE FORM, QD (TAKE ONE TABLET ONCE A DAY)
     Route: 065
     Dates: start: 20221129
  5. OMEPRAZOLE [Concomitant]
     Active Substance: OMEPRAZOLE
     Indication: Product used for unknown indication
     Dosage: UNK, QD (ONE TO BE TAKEN EACH DAY)
     Route: 065
     Dates: start: 20221129
  6. SOLIFENACIN [Concomitant]
     Active Substance: SOLIFENACIN
     Indication: Bladder disorder
     Dosage: 1 DOSAGE FORM, QD (TAKE ONE TABLET EACH DAY FOR BLADDER PROBLEMS)
     Route: 065
     Dates: start: 20230816
  7. Vagirux [Concomitant]
     Indication: Product used for unknown indication
     Dosage: UNK, (INSERT ONE TWICE A WEEK)
     Route: 065
     Dates: start: 20230704

REACTIONS (1)
  - Gastrointestinal disorder [Recovered/Resolved]

NARRATIVE: CASE EVENT DATE: 20230825
